FAERS Safety Report 6409682-6 (Version None)
Quarter: 2009Q4

REPORT INFORMATION
  Report Type: 
  Country: None (occurrence: None)
  Receive Date: 20091021
  Receipt Date: 20091021
  Transmission Date: 20100525
  Serious: Yes (Other)
  Sender: FDA-Public Use
  Company Number: None

PATIENT
  Age: 56 Year
  Sex: Female
  Weight: 65.7716 kg

DRUGS (1)
  1. BONIVA [Suspect]
     Indication: BONE DENSITY DECREASED
     Dosage: ONE PER MONTH PO
     Route: 048
     Dates: start: 20080710, end: 20090610

REACTIONS (5)
  - DYSPEPSIA [None]
  - ERUCTATION [None]
  - OESOPHAGEAL DISCOMFORT [None]
  - SENSATION OF FOREIGN BODY [None]
  - WEIGHT DECREASED [None]
